FAERS Safety Report 11174386 (Version 1)
Quarter: 2015Q2

REPORT INFORMATION
  Report Type: Spontaneous
  Country: US (occurrence: None)
  Receive Date: 20150608
  Receipt Date: 20150608
  Transmission Date: 20150821
  Serious: Yes (Hospitalization)
  Sender: FDA-Public Use
  Company Number: None

PATIENT
  Age: 56 Year
  Sex: Female

DRUGS (1)
  1. SUTENT [Suspect]
     Active Substance: SUNITINIB MALATE
     Indication: RENAL CANCER
     Dosage: 50MG ONCE A DAY FOR 14 DAYS TAKE 7 DAYS OFF THEN REPEAT ORAL
     Route: 048
     Dates: start: 20150421, end: 20150518

REACTIONS (6)
  - Atrial fibrillation [None]
  - Blood pressure decreased [None]
  - Dysgeusia [None]
  - Stomatitis [None]
  - Blister [None]
  - Diarrhoea [None]

NARRATIVE: CASE EVENT DATE: 20150518
